FAERS Safety Report 8486191-4 (Version None)
Quarter: 2012Q3

REPORT INFORMATION
  Report Type: 
  Country: None (occurrence: None)
  Receive Date: 20120703
  Receipt Date: 20120507
  Transmission Date: 20120928
  Serious: No
  Sender: FDA-Public Use
  Company Number: US-ENDO PHARMACEUTICALS INC.-SPLN20120046

PATIENT
  Sex: Female
  Weight: 44.2 kg

DRUGS (4)
  1. SUPPRELIN LA [Suspect]
     Indication: PRECOCIOUS PUBERTY
     Route: 058
     Dates: start: 20070101
  2. DITROPAN [Concomitant]
     Indication: BLADDER SPASM
     Dosage: UNKNOWN
     Route: 065
  3. PREVACID [Concomitant]
     Indication: PRODUCT USED FOR UNKNOWN INDICATION
     Dosage: UNKNOWN
     Route: 065
  4. SINGULAIR [Concomitant]
     Indication: PRODUCT USED FOR UNKNOWN INDICATION
     Dosage: UNKNOWN
     Route: 065

REACTIONS (7)
  - DRUG EFFECT DECREASED [None]
  - MOOD SWINGS [None]
  - PROCEDURAL COMPLICATION [None]
  - VOMITING [None]
  - ABDOMINAL PAIN [None]
  - AFFECT LABILITY [None]
  - IMPLANT SITE HAEMATOMA [None]
